FAERS Safety Report 5258987-3 (Version None)
Quarter: 2007Q1

REPORT INFORMATION
  Report Type: 
  Country: None (occurrence: None)
  Receive Date: 20061217
  Receipt Date: 20051108
  Transmission Date: 20070707
  Serious: Yes (Hospitalization)
  Sender: FDA-Public Use
  Company Number: US-JNJFOC-20051102341

PATIENT
  Age: 49 Year
  Sex: Female
  Weight: 52.6173 kg

DRUGS (2)
  1. LEVAQUIN [Suspect]
     Indication: INFLUENZA
     Dates: start: 20051101, end: 20051102
  2. LEVAQUIN [Suspect]
     Indication: PNEUMONIA
     Dates: start: 20051101, end: 20051102

REACTIONS (2)
  - ARTHRALGIA [None]
  - WEIGHT DECREASED [None]
